FAERS Safety Report 4554058-X (Version None)
Quarter: 2005Q1

REPORT INFORMATION
  Report Type: 
  Country: None (occurrence: None)
  Receive Date: 20050113
  Receipt Date: 20050113
  Transmission Date: 20050727
  Serious: Yes (Life-Threatening, Hospitalization)
  Sender: FDA-Public Use
  Company Number: None

PATIENT
  Age: 17 Year
  Sex: Male
  Weight: 69.5 kg

DRUGS (9)
  1. VINCRISTINE [Suspect]
     Indication: ACUTE LEUKAEMIA
     Dosage: IV PUSH
     Route: 042
     Dates: start: 20041114
  2. VINCRISTINE [Suspect]
     Indication: ACUTE LEUKAEMIA
     Dosage: IV PUSH
     Route: 042
     Dates: start: 20041122
  3. VINCRISTINE [Suspect]
     Indication: ACUTE LEUKAEMIA
     Dosage: IV PUSH
     Route: 042
     Dates: start: 20041129
  4. DAUNORUBICIN  49MG [Suspect]
     Dosage: IV PUSH
     Route: 042
     Dates: start: 20041114
  5. DAUNORUBICIN  49MG [Suspect]
     Dosage: IV PUSH
     Route: 042
     Dates: start: 20041122
  6. DAUNORUBICIN  49MG [Suspect]
     Dosage: IV PUSH
     Route: 042
     Dates: start: 20041129
  7. DEXAMETHASONE [Concomitant]
  8. CYTARABINE [Concomitant]
  9. METHOTREXATE [Concomitant]

REACTIONS (10)
  - ABDOMINAL DISTENSION [None]
  - ABDOMINAL PAIN [None]
  - ABSCESS [None]
  - ATELECTASIS [None]
  - CIRCULATORY COLLAPSE [None]
  - DIVERTICULAR HERNIA [None]
  - DIVERTICULAR PERFORATION [None]
  - LACUNAR INFARCTION [None]
  - SEPTIC SHOCK [None]
  - VOMITING [None]
